FAERS Safety Report 11189607 (Version 1)
Quarter: 2015Q2

REPORT INFORMATION
  Report Type: Spontaneous
  Country: US (occurrence: None)
  Receive Date: 20150603
  Receipt Date: 20150603
  Transmission Date: 20150821
  Serious: No
  Sender: FDA-Public Use
  Company Number: 2015TASUS000741

PATIENT
  Age: 45 Year
  Sex: Male
  Weight: 93 kg

DRUGS (3)
  1. RAMIPRIL (RAMIPRIL) [Concomitant]
     Active Substance: RAMIPRIL
  2. COREG [Concomitant]
     Active Substance: CARVEDILOL
  3. HETLIOZ [Suspect]
     Active Substance: TASIMELTEON
     Indication: CIRCADIAN RHYTHM SLEEP DISORDER
     Route: 048
     Dates: start: 201503

REACTIONS (2)
  - Constipation [None]
  - Somnolence [None]

NARRATIVE: CASE EVENT DATE: 201503
